FAERS Safety Report 4627970-0 (Version None)
Quarter: 2005Q2

REPORT INFORMATION
  Report Type: 
  Country: None (occurrence: None)
  Receive Date: 20050404
  Receipt Date: 20050404
  Transmission Date: 20051028
  Serious: Yes (Other)
  Sender: FDA-Public Use
  Company Number: None

PATIENT
  Sex: Male
  Weight: 68.0396 kg

DRUGS (1)
  1. ADENOSCAN [Suspect]
     Indication: SCAN
     Dosage: 14.3ML ONCE INTRAVENOUS
     Route: 042
     Dates: start: 20050331, end: 20050331

REACTIONS (1)
  - THERAPY NON-RESPONDER [None]
